FAERS Safety Report 4447061-1 (Version None)
Quarter: 2004Q3

REPORT INFORMATION
  Report Type: 
  Country: None (occurrence: None)
  Receive Date: 20040812
  Receipt Date: 20040709
  Transmission Date: 20050211
  Serious: No
  Sender: FDA-Public Use
  Company Number: USA040772153

PATIENT
  Age: 74 Year
  Sex: Male
  Weight: 77 kg

DRUGS (2)
  1. CIALIS [Suspect]
     Dates: start: 20040401, end: 20040401
  2. TYLENOL [Concomitant]

REACTIONS (2)
  - BACK PAIN [None]
  - MYALGIA [None]
